FAERS Safety Report 16160040 (Version 1)
Quarter: 2019Q2

REPORT INFORMATION
  Report Type: Spontaneous
  Country: FR (occurrence: FR)
  Receive Date: 20190404
  Receipt Date: 20190404
  Transmission Date: 20190711
  Serious: Yes (Hospitalization)
  Sender: FDA-Public Use
  Company Number: FR-TEVA-2019-FR-1032788

PATIENT
  Age: 68 Year
  Sex: Female
  Weight: 85 kg

DRUGS (8)
  1. TOUJEO [Suspect]
     Active Substance: INSULIN GLARGINE
     Indication: DIABETES MELLITUS
     Dosage: 50 IU (INTERNATIONAL UNIT) DAILY;
     Route: 030
     Dates: end: 20190212
  2. ATORVASTATINE [Suspect]
     Active Substance: ATORVASTATIN
     Indication: HYPERCHOLESTEROLAEMIA
     Dosage: 10 MILLIGRAM DAILY;
     Route: 047
     Dates: end: 20190125
  3. MONO TILDIEM LP 200 MG, G?LULE ? LIB?RATION PROLONG?E [Concomitant]
     Active Substance: DILTIAZEM HYDROCHLORIDE
     Indication: HYPERTENSION
     Dosage: 200 MILLIGRAM DAILY;
     Route: 048
  4. LOXAPAC 25 MG, COMPRIM? PELLICUL? [Suspect]
     Active Substance: LOXAPINE SUCCINATE
     Indication: PSYCHOTIC DISORDER
     Dosage: 75 MILLIGRAM DAILY;
     Route: 048
     Dates: end: 20190125
  5. COTAREG 160 MG/12,5 MG, COMPRIM? PELLICUL? [Suspect]
     Active Substance: HYDROCHLOROTHIAZIDE\VALSARTAN
     Indication: HYPERTENSION
     Dosage: 1 DOSAGE FORMS DAILY;
     Route: 048
     Dates: end: 20190201
  6. PANTOPRAZOLE [Suspect]
     Active Substance: PANTOPRAZOLE
     Indication: GASTRIC ULCER
     Dosage: 40 MILLIGRAM DAILY;
     Route: 048
  7. ARIPIPRAZOLE. [Suspect]
     Active Substance: ARIPIPRAZOLE
     Indication: BIPOLAR I DISORDER
     Dosage: 15 MILLIGRAM DAILY;
     Route: 048
     Dates: end: 20190125
  8. DIAZEPAM. [Suspect]
     Active Substance: DIAZEPAM
     Indication: ANXIETY
     Route: 048
     Dates: end: 20190125

REACTIONS (1)
  - Cholestasis [Recovering/Resolving]

NARRATIVE: CASE EVENT DATE: 20190201
